FAERS Safety Report 7968807-1 (Version None)
Quarter: 2011Q4

REPORT INFORMATION
  Report Type: 
  Country: None (occurrence: None)
  Receive Date: 20111209
  Receipt Date: 20111206
  Transmission Date: 20120403
  Serious: Yes (Death, Hospitalization)
  Sender: FDA-Public Use
  Company Number: RO-AMGEN-ROUSP2011064618

PATIENT
  Age: 54 Year
  Sex: Female
  Weight: 48 kg

DRUGS (4)
  1. ANTIHYPERTENSIVES [Concomitant]
  2. ALPHA D3 [Concomitant]
     Indication: HYPOPARATHYROIDISM
     Dosage: 0.5 MUG, UNK
     Route: 048
     Dates: start: 20110709
  3. CAL-D-VITA [Concomitant]
     Indication: HYPOCALCAEMIA
     Dosage: UNK
     Route: 048
     Dates: start: 20110609
  4. PROLIA [Suspect]
     Indication: OSTEOPOROSIS
     Dosage: 60 MG, UNK
     Route: 058
     Dates: start: 20110709

REACTIONS (1)
  - INFECTIOUS PERITONITIS [None]
